FAERS Safety Report 5315096-2 (Version None)
Quarter: 2007Q2

REPORT INFORMATION
  Report Type: 
  Country: None (occurrence: None)
  Receive Date: 20070502
  Receipt Date: 20070423
  Transmission Date: 20071010
  Serious: Yes (Other)
  Sender: FDA-Public Use
  Company Number: CA-BOEHRINGER INGELHEIM GMBH, GERMANY-2007-CN-00266CN

PATIENT
  Sex: Male

DRUGS (7)
  1. MICARDIS [Suspect]
     Dates: start: 20061006, end: 20070322
  2. METOPROLOL SUCCINATE [Concomitant]
  3. COLCHICINE [Concomitant]
  4. ALLOPURINOL [Concomitant]
  5. HYDROCHLOROTHIAZIDE [Concomitant]
  6. ALTACE [Concomitant]
  7. SYNTHROID [Concomitant]

REACTIONS (1)
  - LOSS OF CONSCIOUSNESS [None]
